FAERS Safety Report 23298169 (Version 1)
Quarter: 2023Q4

REPORT INFORMATION
  Report Type: Spontaneous
  Country: IT (occurrence: IT)
  Receive Date: 20231214
  Receipt Date: 20231214
  Transmission Date: 20240110
  Serious: Yes (Other)
  Sender: FDA-Public Use
  Company Number: IT-BRACCO-2023IT06710

PATIENT
  Age: 78 Year
  Sex: Male

DRUGS (5)
  1. IOPAMIDOL [Suspect]
     Active Substance: IOPAMIDOL
     Indication: Angioplasty
     Dosage: IOPAMIDOL 300 MG/ML
     Route: 013
  2. PIPERACILLIN SODIUM\TAZOBACTAM SODIUM [Concomitant]
     Active Substance: PIPERACILLIN SODIUM\TAZOBACTAM SODIUM
     Indication: Peritonitis
  3. LINEZOLID [Concomitant]
     Active Substance: LINEZOLID
     Indication: Peritonitis
  4. CEFTAZIDIME [Concomitant]
     Active Substance: CEFTAZIDIME
     Indication: Peritonitis
  5. VANCOMYCIN [Concomitant]
     Active Substance: VANCOMYCIN
     Indication: Peritonitis

REACTIONS (1)
  - Contrast encephalopathy [Recovered/Resolved]
